FAERS Safety Report 4985637-3 (Version None)
Quarter: 2006Q2

REPORT INFORMATION
  Report Type: 
  Country: None (occurrence: None)
  Receive Date: 20060428
  Receipt Date: 20060320
  Transmission Date: 20061013
  Serious: Yes (Other)
  Sender: FDA-Public Use
  Company Number: PHBS2006JP04301

PATIENT
  Age: 22 Year
  Sex: Female

DRUGS (2)
  1. VOLTAREN [Suspect]
     Indication: PYREXIA
     Dosage: 50 MG/DAY
     Route: 054
     Dates: start: 20041201, end: 20041201
  2. PREGLANDIN [Suspect]
     Indication: ABORTION INDUCED
     Dosage: 3 DF
     Route: 067
     Dates: start: 20041201, end: 20041201

REACTIONS (1)
  - HEPATITIS FULMINANT [None]
